FAERS Safety Report 5203195-5 (Version None)
Quarter: 2006Q4

REPORT INFORMATION
  Report Type: 
  Country: None (occurrence: None)
  Receive Date: 20061027
  Receipt Date: 20060323
  Transmission Date: 20070319
  Serious: Yes (Other)
  Sender: FDA-Public Use
  Company Number: HQWYE524924MAR06

PATIENT
  Age: 57 Year
  Sex: Female
  Weight: 68.55 kg

DRUGS (4)
  1. PREMARIN [Suspect]
     Indication: OESTROGEN REPLACEMENT THERAPY
     Dosage: 0.625 MG 1 X PER 1 DAY, ORAL
     Route: 048
     Dates: start: 19720101
  2. ACIPHEX [Concomitant]
  3. MERCAPTOPURINE [Concomitant]
  4. PAXIL [Concomitant]

REACTIONS (1)
  - DEMENTIA ALZHEIMER'S TYPE [None]
